FAERS Safety Report 11655304 (Version 3)
Quarter: 2015Q4

REPORT INFORMATION
  Report Type: Spontaneous
  Country: FR (occurrence: FR)
  Receive Date: 20151023
  Receipt Date: 20151103
  Transmission Date: 20160304
  Serious: Yes (Death, Hospitalization)
  Sender: FDA-Public Use
  Company Number: FR-009507513-1510FRA007982

PATIENT
  Age: 85 Year
  Sex: Female

DRUGS (1)
  1. FIDAXOMICIN [Suspect]
     Active Substance: FIDAXOMICIN
     Indication: CLOSTRIDIUM DIFFICILE INFECTION
     Dosage: UNK
     Route: 048
     Dates: start: 2014, end: 2014

REACTIONS (4)
  - General physical health deterioration [Fatal]
  - Clostridium difficile infection [Unknown]
  - Drug ineffective [Unknown]
  - Death [Fatal]

NARRATIVE: CASE EVENT DATE: 2014
